FAERS Safety Report 9932742 (Version 1)
Quarter: 2014Q1

REPORT INFORMATION
  Report Type: Spontaneous
  Country: US (occurrence: US)
  Receive Date: 20140228
  Receipt Date: 20140228
  Transmission Date: 20141002
  Serious: No
  Sender: FDA-Public Use
  Company Number: US-ABBVIE-13P-163-1061717-00

PATIENT
  Sex: Male
  Weight: 108.96 kg

DRUGS (7)
  1. ANDROGEL [Suspect]
     Indication: BLOOD TESTOSTERONE DECREASED
     Dosage: ALTERNATES EVERY OTHER DAY WITH 1 5GM PACKET THEN 2 5 GM PACKETS
     Route: 061
     Dates: start: 2007
  2. NEXIUM [Concomitant]
     Indication: GASTROOESOPHAGEAL REFLUX DISEASE
  3. NEURONTIN [Concomitant]
     Indication: NEUROPATHY PERIPHERAL
  4. OXYCODONE [Concomitant]
     Indication: NECK PAIN
  5. EYE DROPS [Concomitant]
     Indication: INTRAOCULAR PRESSURE TEST ABNORMAL
     Route: 047
  6. FLOMAX [Concomitant]
     Indication: PRODUCT USED FOR UNKNOWN INDICATION
  7. LEXAPRO [Concomitant]
     Indication: DEPRESSION

REACTIONS (1)
  - Alopecia [Not Recovered/Not Resolved]
